FAERS Safety Report 23423866 (Version 1)
Quarter: 2024Q1

REPORT INFORMATION
  Report Type: Spontaneous
  Country: US (occurrence: US)
  Receive Date: 20240119
  Receipt Date: 20240119
  Transmission Date: 20240410
  Serious: No
  Sender: FDA-Public Use
  Company Number: US-SANOFI-01905690

PATIENT
  Age: 53 Year
  Sex: Male

DRUGS (4)
  1. DUPIXENT [Suspect]
     Active Substance: DUPILUMAB
     Indication: Pruritus
     Dosage: 300 MG, QOW
     Dates: start: 2023
  2. ADBRY [Concomitant]
     Active Substance: TRALOKINUMAB-LDRM
  3. LYRICA [Concomitant]
     Active Substance: PREGABALIN
     Indication: Back pain
  4. OXYCODONE [Concomitant]
     Active Substance: OXYCODONE
     Indication: Back pain

REACTIONS (1)
  - Product use in unapproved indication [Unknown]

NARRATIVE: CASE EVENT DATE: 20230101
